FAERS Safety Report 9261960 (Version 1)
Quarter: 2013Q2

REPORT INFORMATION
  Report Type: Spontaneous
  Country: BR (occurrence: BR)
  Receive Date: 20130429
  Receipt Date: 20130429
  Transmission Date: 20140414
  Serious: Yes (Disabling)
  Sender: FDA-Public Use
  Company Number: BR-B.I. PHARMACEUTICALS,INC./RIDGEFIELD-2013-BR-00456BR

PATIENT
  Age: 58 Year
  Sex: Female
  Weight: 82 kg

DRUGS (5)
  1. SPIRIVA RESPIMAT [Suspect]
     Indication: EMPHYSEMA
     Dosage: 5 MCG
     Dates: start: 201201
  2. CAPTOPRIL [Concomitant]
     Indication: BLOOD PRESSURE
     Dates: start: 2009
  3. BEROTEC [Concomitant]
  4. ATROVENT [Concomitant]
  5. SALMETEROL [Concomitant]
     Dates: start: 201201

REACTIONS (3)
  - Oxygen consumption [Not Recovered/Not Resolved]
  - Dry mouth [Not Recovered/Not Resolved]
  - Chest discomfort [Unknown]
